FAERS Safety Report 8066021-5 (Version None)
Quarter: 2012Q1

REPORT INFORMATION
  Report Type: 
  Country: None (occurrence: None)
  Receive Date: 20120124
  Receipt Date: 20120113
  Transmission Date: 20120608
  Serious: Yes (Hospitalization)
  Sender: FDA-Public Use
  Company Number: JP-NOVOPROD-341996

PATIENT
  Age: 75 Year
  Sex: Male
  Weight: 50 kg

DRUGS (14)
  1. PANCREAZE [Concomitant]
     Indication: DECREASED APPETITE
     Dates: start: 20111130, end: 20111216
  2. LOXONIN [Concomitant]
  3. AMARYL [Concomitant]
  4. ALLOPURINOL [Suspect]
     Indication: HYPERURICAEMIA
     Dosage: 100 MG, QD
     Dates: start: 20111121, end: 20111216
  5. AMLODIPINE                         /00972402/ [Concomitant]
     Dosage: 5 MG, QD
     Route: 048
     Dates: start: 20111121
  6. GASMOTIN [Concomitant]
     Dosage: 15 MG, QD
     Route: 048
     Dates: start: 20111207, end: 20111212
  7. NOVOLIN R [Suspect]
     Indication: TYPE 2 DIABETES MELLITUS
     Dosage: 18 U, QD
     Route: 058
     Dates: start: 20111125, end: 20111221
  8. ROCEPHIN [Concomitant]
     Dates: start: 20111130
  9. CANDESARTAN CILEXETIL [Concomitant]
  10. LEVOFLOXACIN [Concomitant]
  11. NOVOLIN N [Suspect]
     Indication: TYPE 2 DIABETES MELLITUS
     Dosage: 4 U, QD
     Route: 058
     Dates: start: 20111125, end: 20111220
  12. BISOPROLOL FUMARATE [Suspect]
     Indication: HYPERTENSION
     Dosage: 5 MG, QD
     Dates: start: 20111121, end: 20111216
  13. CETIRIZINE [Concomitant]
  14. RABEPRAZOLE SODIUM [Suspect]
     Indication: PRODUCT USED FOR UNKNOWN INDICATION

REACTIONS (1)
  - LIVER DISORDER [None]
